FAERS Safety Report 23350368 (Version 1)
Quarter: 2023Q4

REPORT INFORMATION
  Report Type: Spontaneous
  Country: PL (occurrence: PL)
  Receive Date: 20231229
  Receipt Date: 20231229
  Transmission Date: 20240110
  Serious: Yes (Hospitalization)
  Sender: FDA-Public Use
  Company Number: PL-ORPHANEU-2023009069

PATIENT

DRUGS (3)
  1. SILTUXIMAB [Suspect]
     Active Substance: SILTUXIMAB
     Indication: Castleman^s disease
     Dosage: 11MG/KG, 4 DOSES EVERY ONE WEEK
     Route: 042
     Dates: start: 20231020, end: 20231110
  2. ALLOPURINOL [Suspect]
     Active Substance: ALLOPURINOL
     Indication: Product used for unknown indication
     Dosage: UNK
  3. LEVOFLOXACIN [Suspect]
     Active Substance: LEVOFLOXACIN
     Indication: Product used for unknown indication
     Dosage: UNK

REACTIONS (2)
  - Drug reaction with eosinophilia and systemic symptoms [Recovered/Resolved]
  - Off label use [Recovered/Resolved]

NARRATIVE: CASE EVENT DATE: 20231020
